FAERS Safety Report 11126056 (Version 2)
Quarter: 2015Q2

REPORT INFORMATION
  Report Type: Spontaneous
  Country: CN (occurrence: CN)
  Receive Date: 20150520
  Receipt Date: 20150609
  Transmission Date: 20150821
  Serious: Yes (Hospitalization)
  Sender: FDA-Public Use
  Company Number: PHHY2015CN059338

PATIENT

DRUGS (2)
  1. BUDESONIDE. [Suspect]
     Active Substance: BUDESONIDE
     Indication: DYSPHONIA
     Dosage: 1 MG, BID
     Route: 055
  2. CEFUROXIME. [Suspect]
     Active Substance: CEFUROXIME
     Indication: DYSPHONIA
     Dosage: 3 G, BID
     Route: 042

REACTIONS (5)
  - Laryngitis fungal [Recovered/Resolved]
  - Vocal cord disorder [Recovered/Resolved]
  - Condition aggravated [Unknown]
  - Dysphonia [Recovered/Resolved]
  - Mucosal ulceration [Recovered/Resolved]
